FAERS Safety Report 14589294 (Version 2)
Quarter: 2018Q2

REPORT INFORMATION
  Report Type: Spontaneous
  Country: DE (occurrence: DE)
  Receive Date: 20180301
  Receipt Date: 20180412
  Transmission Date: 20180711
  Serious: Yes (Hospitalization)
  Sender: FDA-Public Use
  Company Number: DE-009507513-1802DEU010717

PATIENT
  Age: 75 Year
  Sex: Female
  Weight: 50 kg

DRUGS (9)
  1. APOMORPHINE HYDROCHLORIDE [Suspect]
     Active Substance: APOMORPHINE HYDROCHLORIDE
     Indication: PARKINSON^S DISEASE
     Dosage: DAILY DOSAGE: 44,85 MG, DOSE DECREASED : 38,47 MG/D,  08:00 - 21:30
     Route: 058
     Dates: start: 20160726
  2. REQUIP [Concomitant]
     Active Substance: ROPINIROLE HYDROCHLORIDE
     Dosage: 1X1 TABLET/DAY
     Route: 048
  3. SCOPODERM TTS [Concomitant]
     Active Substance: SCOPOLAMINE
     Route: 062
  4. IBUPROFEN. [Suspect]
     Active Substance: IBUPROFEN
     Dosage: 800 MG/ ^0.5 DAY^
     Route: 048
  5. NACOM RETARD [Suspect]
     Active Substance: CARBIDOPA\LEVODOPA
     Dosage: 1.5 TABLET/DAY
     Route: 048
  6. MADOPAR [Concomitant]
     Active Substance: BENSERAZIDE HYDROCHLORIDE\LEVODOPA
     Dosage: 125 MG, QD
     Route: 048
  7. QUETIAPINE FUMARATE. [Concomitant]
     Active Substance: QUETIAPINE FUMARATE
     Dosage: 1X1 TBL/DAY
     Route: 048
  8. MADOPAR [Concomitant]
     Active Substance: BENSERAZIDE HYDROCHLORIDE\LEVODOPA
     Dosage: 125 MG, QD
     Route: 048
  9. CITALOPRAM [Concomitant]
     Active Substance: CITALOPRAM HYDROBROMIDE
     Dosage: 10 MG, QH
     Route: 048

REACTIONS (4)
  - Vomiting [Recovered/Resolved]
  - Weight decreased [Not Recovered/Not Resolved]
  - Nausea [Recovered/Resolved]
  - Hyperkinesia [Not Recovered/Not Resolved]
